FAERS Safety Report 26054883 (Version 1)
Quarter: 2025Q4

REPORT INFORMATION
  Report Type: Spontaneous
  Country: AR (occurrence: AR)
  Receive Date: 20251117
  Receipt Date: 20251117
  Transmission Date: 20260118
  Serious: Yes (Hospitalization)
  Sender: PFIZER
  Company Number: AR-PFIZER INC-202500204130

PATIENT
  Age: 77 Year
  Sex: Male
  Weight: 68 kg

DRUGS (6)
  1. VYNDAMAX [Suspect]
     Active Substance: TAFAMIDIS
     Indication: Cardiac amyloidosis
     Dosage: 61 MG, 1X/DAY
     Dates: start: 20241022
  2. FUROSEMIDE [Concomitant]
     Active Substance: FUROSEMIDE
     Dosage: 40 MG
  3. RIVAROXABAN [Concomitant]
     Active Substance: RIVAROXABAN
     Dosage: 15 MG
  4. EMPAGLIFLOZIN [Concomitant]
     Active Substance: EMPAGLIFLOZIN
     Dosage: 10 MG
  5. ROSUVASTATIN [Concomitant]
     Active Substance: ROSUVASTATIN
     Dosage: 20 MG
  6. EPLERENONE [Concomitant]
     Active Substance: EPLERENONE
     Dosage: 50 MG

REACTIONS (17)
  - Blood sodium decreased [Unknown]
  - Red blood cell count decreased [Unknown]
  - Neutrophil count increased [Unknown]
  - Platelet count decreased [Unknown]
  - Blood urea increased [Unknown]
  - Prothrombin level decreased [Unknown]
  - International normalised ratio decreased [Unknown]
  - Activated partial thromboplastin time prolonged [Unknown]
  - Bilirubin conjugated increased [Unknown]
  - Alanine aminotransferase increased [Unknown]
  - Blood alkaline phosphatase increased [Unknown]
  - Gamma-glutamyltransferase increased [Unknown]
  - PO2 increased [Unknown]
  - Oxygen saturation increased [Unknown]
  - Lymphocyte count decreased [Unknown]
  - N-terminal prohormone brain natriuretic peptide increased [Unknown]
  - Troponin increased [Unknown]
